FAERS Safety Report 7353910-X (Version None)
Quarter: 2011Q1

REPORT INFORMATION
  Report Type: 
  Country: None (occurrence: None)
  Receive Date: 20110315
  Receipt Date: 20110228
  Transmission Date: 20110831
  Serious: Yes (Other)
  Sender: FDA-Public Use
  Company Number: PHHY2011FR17086

PATIENT
  Sex: Male
  Weight: 80 kg

DRUGS (1)
  1. AREDIA [Suspect]
     Indication: COMPLEX REGIONAL PAIN SYNDROME
     Dates: start: 20110218

REACTIONS (12)
  - INJECTION SITE SWELLING [None]
  - PYREXIA [None]
  - INJECTION SITE PAIN [None]
  - MYALGIA [None]
  - VOMITING [None]
  - LYMPHOPENIA [None]
  - BACK PAIN [None]
  - CHEST PAIN [None]
  - INJECTION SITE REACTION [None]
  - INJECTION SITE ERYTHEMA [None]
  - FEELING HOT [None]
  - NAUSEA [None]
